FAERS Safety Report 12234513 (Version 1)
Quarter: 2016Q2

REPORT INFORMATION
  Report Type: Spontaneous
  Country: US (occurrence: None)
  Receive Date: 20160401
  Receipt Date: 20160401
  Transmission Date: 20160815
  Serious: Yes (Other)
  Sender: FDA-Public Use
  Company Number: None

PATIENT
  Age: 51 Year
  Sex: Female
  Weight: 74 kg

DRUGS (1)
  1. NEOSTIGMINE METHYLSULFATE. [Suspect]
     Active Substance: NEOSTIGMINE METHYLSULFATE
     Indication: PARALYSIS
     Route: 042
     Dates: start: 20160331, end: 20160331

REACTIONS (3)
  - Neuromyopathy [None]
  - Respiratory disorder [None]
  - Condition aggravated [None]

NARRATIVE: CASE EVENT DATE: 20160331
